FAERS Safety Report 4960277-0 (Version None)
Quarter: 2006Q2

REPORT INFORMATION
  Report Type: 
  Country: None (occurrence: None)
  Receive Date: 20060403
  Receipt Date: 20060320
  Transmission Date: 20061013
  Serious: Yes (Hospitalization)
  Sender: FDA-Public Use
  Company Number: PHRM2006FR01108

PATIENT
  Sex: Female

DRUGS (1)
  1. DESFERAL [Suspect]
     Indication: BLOOD IRON INCREASED
     Route: 030

REACTIONS (1)
  - RETINAL VEIN THROMBOSIS [None]
